FAERS Safety Report 5059571-7 (Version None)
Quarter: 2006Q3

REPORT INFORMATION
  Report Type: 
  Country: None (occurrence: None)
  Receive Date: 20060724
  Receipt Date: 20060714
  Transmission Date: 20061208
  Serious: Yes (Other)
  Sender: FDA-Public Use
  Company Number: 2006UW14683

PATIENT
  Age: 64 Year
  Sex: Female

DRUGS (5)
  1. CRESTOR [Suspect]
     Route: 048
  2. GENFERIOFIBRATE [Suspect]
  3. DIOVAN [Concomitant]
  4. GLYBURIDE [Concomitant]
  5. METFORMIN [Concomitant]

REACTIONS (5)
  - FALL [None]
  - MUSCULAR WEAKNESS [None]
  - MYALGIA [None]
  - NIGHTMARE [None]
  - SLEEP WALKING [None]
